FAERS Safety Report 8829309 (Version 1)
Quarter: 2012Q4

REPORT INFORMATION
  Report Type: 
  Country: DE (occurrence: DE)
  Receive Date: 20121008
  Receipt Date: 20121008
  Transmission Date: 20130627
  Serious: Yes (Other)
  Sender: FDA-Public Use
  Company Number: DE-ABBOTT-12P-062-0990295-00

PATIENT
  Age: 74 Year
  Sex: Male

DRUGS (6)
  1. TRENANTONE [Suspect]
     Route: 058
     Dates: start: 20120209
  2. TRENANTONE [Suspect]
     Route: 058
  3. LISINOPRIL [Concomitant]
     Indication: PRODUCT USED FOR UNKNOWN INDICATION
  4. BISOPROLOL [Concomitant]
     Indication: PRODUCT USED FOR UNKNOWN INDICATION
  5. ACETYLSALICYLIC ACID [Concomitant]
     Indication: PRODUCT USED FOR UNKNOWN INDICATION
  6. SIMVASTATIN [Concomitant]
     Indication: PRODUCT USED FOR UNKNOWN INDICATION
     Dosage: Prior Use: Yes

REACTIONS (2)
  - Injection site abscess [Recovered/Resolved]
  - Injection site abscess [Not Recovered/Not Resolved]
